FAERS Safety Report 8364163-8 (Version None)
Quarter: 2012Q2

REPORT INFORMATION
  Report Type: 
  Country: None (occurrence: None)
  Receive Date: 20120516
  Receipt Date: 20120503
  Transmission Date: 20120825
  Serious: Yes (Hospitalization, Other)
  Sender: FDA-Public Use
  Company Number: US-JNJFOC-20110103164

PATIENT
  Sex: Male
  Weight: 66 kg

DRUGS (17)
  1. REMICADE [Suspect]
     Route: 042
     Dates: start: 20081107
  2. REMICADE [Suspect]
     Route: 042
     Dates: start: 20050624
  3. REMICADE [Suspect]
     Route: 042
     Dates: start: 20090403
  4. REMICADE [Suspect]
     Route: 042
  5. REMICADE [Suspect]
     Route: 042
     Dates: start: 20100422
  6. REMICADE [Suspect]
     Route: 042
     Dates: start: 20030707
  7. REMICADE [Suspect]
     Route: 042
     Dates: start: 20031107
  8. REMICADE [Suspect]
     Route: 042
     Dates: start: 20051007
  9. REMICADE [Suspect]
     Route: 042
     Dates: start: 20081015
  10. REMICADE [Suspect]
     Route: 042
     Dates: start: 20090105
  11. PREDNISONE TAB [Concomitant]
     Indication: CROHN'S DISEASE
  12. REMICADE [Suspect]
     Route: 042
     Dates: start: 20090529
  13. REMICADE [Suspect]
     Route: 042
     Dates: start: 20090916
  14. REMICADE [Suspect]
     Route: 042
     Dates: start: 20091117
  15. REMICADE [Suspect]
     Indication: CROHN'S DISEASE
     Route: 042
     Dates: start: 20100122
  16. REMICADE [Suspect]
     Route: 042
     Dates: start: 20030213
  17. REMICADE [Suspect]
     Route: 042
     Dates: start: 20051202

REACTIONS (6)
  - POSTOPERATIVE ABSCESS [None]
  - ACCIDENT AT HOME [None]
  - ABDOMINAL INJURY [None]
  - COLECTOMY [None]
  - OROPHARYNGEAL CANDIDIASIS [None]
  - LARGE INTESTINE PERFORATION [None]
